FAERS Safety Report 9207109 (Version 4)
Quarter: 2013Q4

REPORT INFORMATION
  Report Type: Spontaneous
  Country: US (occurrence: US)
  Receive Date: 20130403
  Receipt Date: 20131107
  Transmission Date: 20140711
  Serious: Yes (Hospitalization, Other)
  Sender: FDA-Public Use
  Company Number: US-009507513-1303USA013353

PATIENT
  Sex: Female
  Weight: 54.97 kg

DRUGS (6)
  1. FOSAMAX [Suspect]
     Indication: OSTEOPOROSIS
     Dosage: 10 MG, UNK
     Route: 048
     Dates: start: 199809, end: 200110
  2. FOSAMAX [Suspect]
     Dosage: 70 MG, UNK
     Route: 048
     Dates: start: 200110, end: 200801
  3. ALENDRONATE SODIUM [Suspect]
     Indication: OSTEOPOROSIS
     Dosage: 70 MG, UNK
     Route: 048
     Dates: start: 200801, end: 200905
  4. HORMONES (UNSPECIFIED) [Concomitant]
     Dosage: UNK
     Dates: start: 2000
  5. VITAMIN D (UNSPECIFIED) [Concomitant]
     Indication: OSTEOPOROSIS
  6. CALCIUM (UNSPECIFIED) [Concomitant]
     Indication: OSTEOPOROSIS

REACTIONS (11)
  - Femur fracture [Unknown]
  - Intramedullary rod insertion [Unknown]
  - Lumbar vertebral fracture [Unknown]
  - Fall [Unknown]
  - Road traffic accident [Unknown]
  - Oral surgery [Unknown]
  - Hypertension [Unknown]
  - Blood cholesterol increased [Unknown]
  - Skin lesion excision [Unknown]
  - Keloid scar [Unknown]
  - Uterine dilation and curettage [Unknown]
